FAERS Safety Report 4921001-0 (Version None)
Quarter: 2006Q1

REPORT INFORMATION
  Report Type: 
  Country: None (occurrence: None)
  Receive Date: 20060217
  Receipt Date: 20060206
  Transmission Date: 20060701
  Serious: Yes (Hospitalization)
  Sender: FDA-Public Use
  Company Number: TCI2005A03929

PATIENT
  Age: 78 Year
  Sex: Male

DRUGS (9)
  1. ACTOS [Suspect]
     Indication: DIABETES MELLITUS
     Dosage: 15 MG (15 MG, 1 IN 1 D) PER ORAL
     Route: 048
     Dates: start: 20050101, end: 20050601
  2. BLOPRESS TABLETS 8 (CANDESARTAN CILEXETIL) [Concomitant]
  3. BASEN (VOGLIBOSE) [Concomitant]
  4. LANSOPRAZOLE [Concomitant]
  5. ASPIRIN [Concomitant]
  6. PANALDIN (TICLOPIDINE HYDROCHLORIDE) [Concomitant]
  7. ALDACTONE [Concomitant]
  8. MUCOSTA (REBAMIPIDE) [Concomitant]
  9. HARCION (TRIAZOLAM) [Concomitant]

REACTIONS (19)
  - ABDOMINAL DISTENSION [None]
  - ACUTE MYOCARDIAL INFARCTION [None]
  - ASCITES [None]
  - BLOOD PRESSURE DIASTOLIC DECREASED [None]
  - BODY TEMPERATURE DECREASED [None]
  - DIABETES MELLITUS INADEQUATE CONTROL [None]
  - DIVERTICULUM OESOPHAGEAL [None]
  - GALLBLADDER OEDEMA [None]
  - GLYCOSYLATED HAEMOGLOBIN INCREASED [None]
  - HAEMATOCRIT DECREASED [None]
  - HAEMOGLOBIN DECREASED [None]
  - HEPATIC CIRRHOSIS [None]
  - HIATUS HERNIA [None]
  - MALAISE [None]
  - PLATELET COUNT DECREASED [None]
  - PROTEIN URINE PRESENT [None]
  - SPLENOMEGALY [None]
  - TREATMENT NONCOMPLIANCE [None]
  - WHITE BLOOD CELL COUNT DECREASED [None]
